FAERS Safety Report 11284036 (Version 2)
Quarter: 2015Q3

REPORT INFORMATION
  Report Type: Spontaneous
  Country: DE (occurrence: DE)
  Receive Date: 20150720
  Receipt Date: 20150821
  Transmission Date: 20151125
  Serious: Yes (Death, Life-Threatening, Hospitalization)
  Sender: FDA-Public Use
  Company Number: DE-ROCHE-1610628

PATIENT
  Age: 42 Year
  Sex: Female
  Weight: 100 kg

DRUGS (5)
  1. TAVEGIL [Concomitant]
     Active Substance: CLEMASTINE FUMARATE
     Dosage: ON DAYS 1, 8, 15, 29
     Route: 042
     Dates: start: 20141217, end: 20150520
  2. AVASTIN [Suspect]
     Active Substance: BEVACIZUMAB
     Indication: BREAST CANCER METASTATIC
     Route: 042
     Dates: start: 20141217, end: 20150622
  3. TAXOMEDAC [Suspect]
     Active Substance: PACLITAXEL
     Indication: BREAST CANCER METASTATIC
     Dosage: DAYS 1, 8, 15, 29
     Route: 042
     Dates: start: 20141217, end: 20150520
  4. RANITIDINE [Concomitant]
     Active Substance: RANITIDINE\RANITIDINE HYDROCHLORIDE
     Indication: CHEMOTHERAPY
     Dosage: ON DAYS 1, 8, 15, 29
     Route: 042
     Dates: start: 20141217, end: 20150520
  5. DEXAMETHASONE. [Concomitant]
     Active Substance: DEXAMETHASONE
     Indication: CHEMOTHERAPY
     Dosage: ON DAYS 0, 1, 2, 7, 8, 9, 14
     Route: 065
     Dates: start: 20141216, end: 20150520

REACTIONS (6)
  - Hepatorenal syndrome [Fatal]
  - Transaminases increased [Recovering/Resolving]
  - Metastases to bone [Not Recovered/Not Resolved]
  - Hepatic steatosis [Unknown]
  - Acute hepatic failure [Fatal]
  - Ascites [Fatal]

NARRATIVE: CASE EVENT DATE: 20150225
